FAERS Safety Report 22302029 (Version 3)
Quarter: 2023Q2

REPORT INFORMATION
  Report Type: Spontaneous
  Country: PT (occurrence: PT)
  Receive Date: 20230510
  Receipt Date: 20230530
  Transmission Date: 20230721
  Serious: Yes (Other)
  Sender: FDA-Public Use
  Company Number: None

PATIENT
  Age: 11 Year
  Sex: Female

DRUGS (9)
  1. LEVETIRACETAM [Suspect]
     Active Substance: LEVETIRACETAM
     Indication: Posterior reversible encephalopathy syndrome
     Dosage: UNK
  2. LEVETIRACETAM [Suspect]
     Active Substance: LEVETIRACETAM
     Indication: Off label use
  3. ENALAPRIL [Suspect]
     Active Substance: ENALAPRIL
     Indication: Mitral valve incompetence
     Dosage: 0.5 MILLIGRAM, ONCE DAILY (QD)
  4. ENALAPRIL [Suspect]
     Active Substance: ENALAPRIL
     Indication: Tricuspid valve incompetence
  5. ENALAPRIL [Suspect]
     Active Substance: ENALAPRIL
     Indication: Left ventricular hypertrophy
  6. AMLODIPINE [Concomitant]
     Active Substance: AMLODIPINE BESYLATE
     Indication: Product used for unknown indication
     Dosage: 0.1 MILLIGRAM/KILOGRAM/DAY
  7. ENALAPRIL [Concomitant]
     Active Substance: ENALAPRIL
     Indication: Left ventricular hypertrophy
     Dosage: 0.1 MILLIGRAM/KILOGRAM/DAY
  8. ENALAPRIL [Concomitant]
     Active Substance: ENALAPRIL
     Indication: Mitral valve incompetence
     Dosage: 0.5 MILLIGRAM/KILOGRAM/DAY
  9. ENALAPRIL [Concomitant]
     Active Substance: ENALAPRIL
     Indication: Tricuspid valve incompetence
     Dosage: 0.4 MILLIGRAM/KILOGRAM/DAY

REACTIONS (3)
  - Hypertensive crisis [Unknown]
  - Product use issue [Unknown]
  - Off label use [Unknown]
